FAERS Safety Report 19042535 (Version 1)
Quarter: 2021Q1

REPORT INFORMATION
  Report Type: Spontaneous
  Country: US (occurrence: US)
  Receive Date: 20210323
  Receipt Date: 20210323
  Transmission Date: 20210420
  Serious: Yes (Hospitalization)
  Sender: FDA-Public Use
  Company Number: US-EMCURE PHARMACEUTICALS LTD-2021-EPL-000879

PATIENT
  Age: 30 Year
  Sex: Female

DRUGS (9)
  1. PYRAZINAMIDE. [Suspect]
     Active Substance: PYRAZINAMIDE
     Indication: DISSEMINATED TUBERCULOSIS
     Dosage: THERAPY FOR 4 MONTHS, FOLLOWED BY DUAL THERAPY FOR 2 MONTHS
  2. RIFABUTIN. [Concomitant]
     Active Substance: RIFABUTIN
  3. LEVOFLOXACIN. [Concomitant]
     Active Substance: LEVOFLOXACIN
  4. AMIKACIN. [Concomitant]
     Active Substance: AMIKACIN
  5. DEXAMETHASONE. [Concomitant]
     Active Substance: DEXAMETHASONE
     Dosage: UNK
  6. ETHAMBUTOL [Suspect]
     Active Substance: ETHAMBUTOL HYDROCHLORIDE
     Indication: DISSEMINATED TUBERCULOSIS
     Dosage: THERAPY FOR 4 MONTHS, FOLLOWED BY DUAL THERAPY FOR 2 MONTHS
  7. ISONIAZID. [Suspect]
     Active Substance: ISONIAZID
     Indication: DISSEMINATED TUBERCULOSIS
     Dosage: THERAPY FOR 4 MONTHS, FOLLOWED BY DUAL THERAPY FOR 2 MONTHS
  8. LINEZOLID. [Concomitant]
     Active Substance: LINEZOLID
  9. RIFAMPIN. [Suspect]
     Active Substance: RIFAMPIN
     Indication: DISSEMINATED TUBERCULOSIS
     Dosage: THERAPY FOR 4 MONTHS, FOLLOWED BY DUAL THERAPY FOR 2 MONTHS

REACTIONS (3)
  - Hepatic encephalopathy [Recovered/Resolved]
  - Acute hepatic failure [Recovering/Resolving]
  - Coagulopathy [Recovering/Resolving]
